FAERS Safety Report 13921601 (Version 2)
Quarter: 2019Q1

REPORT INFORMATION
  Report Type: Report from Study
  Country: US (occurrence: US)
  Receive Date: 20170830
  Receipt Date: 20190319
  Transmission Date: 20190417
  Serious: Yes (Hospitalization, Other)
  Sender: FDA-Public Use
  Company Number: US-SA-2016SA230153

PATIENT
  Age: 35 Year
  Sex: Female
  Weight: 95.25 kg

DRUGS (9)
  1. ACICLOVIR [Concomitant]
     Active Substance: ACYCLOVIR
     Dosage: 200 MG,QD
  2. PARACETAMOL [Concomitant]
     Active Substance: ACETAMINOPHEN
     Dosage: 1000 MG,UNK
     Route: 042
     Dates: start: 20161212, end: 20161216
  3. ZOFRAN [Concomitant]
     Active Substance: ONDANSETRON HYDROCHLORIDE
     Indication: NAUSEA
     Dosage: UNK
     Dates: start: 20161212
  4. ZANTAC [Concomitant]
     Active Substance: RANITIDINE HYDROCHLORIDE
     Indication: HYPERSENSITIVITY
     Dosage: 75 MG,QD
     Dates: start: 20161212
  5. ALEMTUZUMAB [Suspect]
     Active Substance: ALEMTUZUMAB
     Indication: MULTIPLE SCLEROSIS
     Dosage: 12 MG,QD
     Route: 041
     Dates: start: 20161212, end: 20161216
  6. METHYLPREDNISOLONE SODIUM SUCCINATE. [Suspect]
     Active Substance: METHYLPREDNISOLONE SODIUM SUCCINATE
     Dosage: 1 G,QD
     Route: 065
     Dates: start: 20161212, end: 20161216
  7. ADDERALL [Concomitant]
     Active Substance: AMPHETAMINE ASPARTATE\AMPHETAMINE SULFATE\DEXTROAMPHETAMINE SACCHARATE\DEXTROAMPHETAMINE SULFATE
     Dosage: 20 MG,QD
  8. BENADRYL [Concomitant]
     Active Substance: DIPHENHYDRAMINE HYDROCHLORIDE
     Indication: HYPERSENSITIVITY
     Dosage: 50 MG,Q6H
     Route: 048
     Dates: start: 20161212
  9. NORCO [Concomitant]
     Active Substance: ACETAMINOPHEN\HYDROCODONE BITARTRATE
     Dosage: UNK UNK,PRN

REACTIONS (20)
  - Herpes zoster [Not Recovered/Not Resolved]
  - Heart rate decreased [Recovered/Resolved]
  - Blood pressure abnormal [Not Recovered/Not Resolved]
  - Blood creatinine abnormal [Not Recovered/Not Resolved]
  - Headache [Unknown]
  - Pain [Not Recovered/Not Resolved]
  - Vein rupture [Unknown]
  - Back pain [Recovered/Resolved]
  - Headache [Unknown]
  - Muscle spasticity [Unknown]
  - Chest pain [Recovered/Resolved]
  - Blood urea abnormal [Not Recovered/Not Resolved]
  - Hypotension [Unknown]
  - Band sensation [Recovered/Resolved]
  - Dyspnoea [Recovered/Resolved]
  - Fatigue [Unknown]
  - Weight increased [Recovered/Resolved]
  - Abdominal pain lower [Not Recovered/Not Resolved]
  - Head discomfort [Recovered/Resolved]
  - Pain in extremity [Recovered/Resolved]

NARRATIVE: CASE EVENT DATE: 201612
